FAERS Safety Report 4870644-1 (Version None)
Quarter: 2005Q4

REPORT INFORMATION
  Report Type: 
  Country: None (occurrence: None)
  Receive Date: 20051228
  Receipt Date: 20051212
  Transmission Date: 20060501
  Serious: Yes (Other)
  Sender: FDA-Public Use
  Company Number: AU-2005-026810

PATIENT
  Sex: Female

DRUGS (2)
  1. BETAFERON (INTERFERON BETA -1B)INJECTION, 250?G [Suspect]
     Dosage: SUBCUTANEOUS
     Route: 058
  2. CORTICOSTEROIDS [Concomitant]

REACTIONS (1)
  - GASTROINTESTINAL ULCER [None]
